FAERS Safety Report 4332242-8 (Version None)
Quarter: 2004Q1

REPORT INFORMATION
  Report Type: 
  Country: None (occurrence: None)
  Receive Date: 20040329
  Receipt Date: 20040317
  Transmission Date: 20041129
  Serious: Yes (Hospitalization, Other)
  Sender: FDA-Public Use
  Company Number: 2004001007

PATIENT
  Age: 47 Year
  Sex: Male
  Weight: 74.8435 kg

DRUGS (6)
  1. LIPITOR (ATORVASTATIN) [Suspect]
     Indication: BLOOD CHOLESTEROL INCREASED
     Dosage: 10 MG (DAILY), ORAL
     Route: 048
     Dates: start: 20010821, end: 20031001
  2. DIGOXIN [Suspect]
     Indication: CARDIAC DISORDER
     Dosage: ORAL
     Route: 048
     Dates: end: 20030101
  3. ATENOLOL [Concomitant]
  4. AMITRIPTYLINE HCL [Concomitant]
  5. OXYCOCET (PARACETAMOL, OXYCODONE HYDROCHLORIDE) [Concomitant]
  6. METHADONE HCL [Concomitant]

REACTIONS (10)
  - ASTHENIA [None]
  - BACK DISORDER [None]
  - BLOOD PRESSURE ORTHOSTATIC DECREASED [None]
  - BURNING SENSATION [None]
  - CONVULSION [None]
  - DISTURBANCE IN ATTENTION [None]
  - DYSURIA [None]
  - FACE INJURY [None]
  - RENAL DISORDER [None]
  - THINKING ABNORMAL [None]
